FAERS Safety Report 7052480-3 (Version None)
Quarter: 2010Q4

REPORT INFORMATION
  Report Type: 
  Country: None (occurrence: None)
  Receive Date: 20101014
  Receipt Date: 20100930
  Transmission Date: 20110411
  Serious: Yes (Hospitalization)
  Sender: FDA-Public Use
  Company Number: US-1183607

PATIENT
  Age: 87 Year
  Sex: Female

DRUGS (1)
  1. VIGAMOX [Suspect]
     Dosage: QID OPHTHALMIC
     Route: 047
     Dates: start: 20100924

REACTIONS (2)
  - BLOOD PRESSURE FLUCTUATION [None]
  - DIZZINESS [None]
